FAERS Safety Report 5333477-8 (Version None)
Quarter: 2007Q2

REPORT INFORMATION
  Report Type: 
  Country: None (occurrence: None)
  Receive Date: 20070522
  Receipt Date: 20070522
  Transmission Date: 20071010
  Serious: Yes (Other)
  Sender: FDA-Public Use
  Company Number: None

PATIENT
  Age: 59 Year
  Sex: Female
  Weight: 89.8122 kg

DRUGS (1)
  1. CIPROFLOXACIN [Suspect]
     Indication: POSTOPERATIVE WOUND INFECTION
     Dosage: 750 TWICE DAILY PO
     Route: 048
     Dates: start: 20070504, end: 20070515

REACTIONS (8)
  - ARTHRALGIA [None]
  - MUSCULOSKELETAL PAIN [None]
  - NECK PAIN [None]
  - PITTING OEDEMA [None]
  - POSTOPERATIVE WOUND INFECTION [None]
  - RASH PAPULAR [None]
  - RASH PRURITIC [None]
  - RENAL PAIN [None]
